FAERS Safety Report 5524274-9 (Version None)
Quarter: 2007Q4

REPORT INFORMATION
  Report Type: 
  Country: None (occurrence: None)
  Receive Date: 20071121
  Receipt Date: 20071109
  Transmission Date: 20080405
  Serious: Yes (Hospitalization, Other)
  Sender: FDA-Public Use
  Company Number: JP-PFIZER INC-2007090152

PATIENT
  Sex: Male
  Weight: 65 kg

DRUGS (5)
  1. AZULFIDINE EN-TABS [Suspect]
     Indication: RHEUMATOID ARTHRITIS
     Dates: start: 20060407, end: 20060518
  2. RIMATIL [Suspect]
     Indication: RHEUMATOID ARTHRITIS
     Dates: start: 19970101, end: 20060406
  3. MOVER [Concomitant]
     Route: 048
  4. PREDNISOLONE [Concomitant]
     Route: 048
     Dates: start: 20030601, end: 20060803
  5. EPPI-KA-ZYUTU-TO [Concomitant]
     Route: 048
     Dates: start: 20030601, end: 20060101

REACTIONS (2)
  - PNEUMONIA [None]
  - RASH [None]
